FAERS Safety Report 7775713-4 (Version None)
Quarter: 2011Q3

REPORT INFORMATION
  Report Type: 
  Country: None (occurrence: None)
  Receive Date: 20110923
  Receipt Date: 20110920
  Transmission Date: 20111222
  Serious: Yes (Hospitalization)
  Sender: FDA-Public Use
  Company Number: JP-GLAXOSMITHKLINE-B0742398A

PATIENT
  Sex: Female

DRUGS (2)
  1. KEPPRA [Concomitant]
     Indication: TEMPORAL LOBE EPILEPSY
     Dosage: 3000MG PER DAY
     Route: 048
  2. LAMICTAL [Suspect]
     Indication: TEMPORAL LOBE EPILEPSY
     Dosage: 100MG PER DAY
     Route: 048
     Dates: start: 20110624, end: 20110708

REACTIONS (6)
  - LYMPHADENOPATHY [None]
  - PYREXIA [None]
  - HYPERTHERMIA [None]
  - RASH [None]
  - RASH GENERALISED [None]
  - DRUG RASH WITH EOSINOPHILIA AND SYSTEMIC SYMPTOMS [None]
